FAERS Safety Report 8614505 (Version 4)
Quarter: 2014Q2

REPORT INFORMATION
  Report Type: Spontaneous
  Country: US (occurrence: US)
  Receive Date: 20120614
  Receipt Date: 20140509
  Transmission Date: 20141212
  Serious: Yes (Hospitalization, Other)
  Sender: FDA-Public Use
  Company Number: US-ASTRAZENECA-2012SE35740

PATIENT
  Age: 51 Year
  Sex: Male
  Weight: 72.6 kg

DRUGS (18)
  1. NEXIUM [Suspect]
     Indication: GASTROOESOPHAGEAL REFLUX DISEASE
     Dosage: ONCE
     Route: 048
     Dates: start: 2002
  2. NEXIUM [Suspect]
     Indication: GASTROOESOPHAGEAL REFLUX DISEASE
     Route: 048
     Dates: start: 200205
  3. NEXIUM [Suspect]
     Indication: GASTROOESOPHAGEAL REFLUX DISEASE
     Route: 048
     Dates: start: 2004
  4. PEPCID [Concomitant]
  5. TUMS [Concomitant]
     Indication: GASTROOESOPHAGEAL REFLUX DISEASE
  6. TUMS [Concomitant]
     Indication: DYSPEPSIA
  7. ALKA-SELTZER [Concomitant]
     Indication: GASTROOESOPHAGEAL REFLUX DISEASE
  8. ALKA-SELTZER [Concomitant]
     Indication: DYSPEPSIA
  9. MYLANTA [Concomitant]
     Indication: GASTROOESOPHAGEAL REFLUX DISEASE
  10. MYLANTA [Concomitant]
     Indication: DYSPEPSIA
  11. ZESTORETIC [Concomitant]
     Dosage: 10 TO 12.5 MG
     Dates: start: 20090416
  12. XANAX [Concomitant]
     Dates: start: 20090416
  13. OXYCODONE HCL [Concomitant]
     Dates: start: 20090416
  14. LORCET [Concomitant]
     Dosage: 10/650 MG
     Dates: start: 20090416
  15. NEURONTIN [Concomitant]
     Dates: start: 20090416
  16. COREG [Concomitant]
     Dates: start: 20090416
  17. LEVSIN [Concomitant]
     Indication: ABDOMINAL PAIN
     Dates: start: 20090416
  18. PHENERGAN [Concomitant]
     Indication: NAUSEA
     Dates: start: 20090416

REACTIONS (14)
  - Convulsion [Unknown]
  - Jaw fracture [Unknown]
  - Foot fracture [Unknown]
  - Electrolyte imbalance [Unknown]
  - Fall [Unknown]
  - Cerebrovascular accident [Unknown]
  - Osteoporosis [Unknown]
  - Bone disorder [Unknown]
  - Multiple fractures [Unknown]
  - Humerus fracture [Unknown]
  - Arthritis [Unknown]
  - Liver disorder [Unknown]
  - Androgen deficiency [Unknown]
  - Lung disorder [Unknown]
